FAERS Safety Report 4752671-8 (Version None)
Quarter: 2005Q3

REPORT INFORMATION
  Report Type: 
  Country: None (occurrence: None)
  Receive Date: 20050823
  Receipt Date: 20050809
  Transmission Date: 20060218
  Serious: Yes (Hospitalization)
  Sender: FDA-Public Use
  Company Number: DSA_26863_2005

PATIENT
  Age: 50 Year
  Sex: Male

DRUGS (6)
  1. LORAZEPAM [Suspect]
     Dosage: DF ONCE PO
     Route: 048
     Dates: start: 20050615, end: 20050615
  2. CIPRALEX [Suspect]
     Dosage: 1 DF ONCE PO
     Route: 048
     Dates: start: 20050615, end: 20050615
  3. IMOVANE [Suspect]
     Dosage: DF ONCE PO
     Route: 048
     Dates: start: 20050615, end: 20050615
  4. TRANXILIUM [Suspect]
     Dosage: DF ONCE PO
     Route: 048
     Dates: start: 20050615, end: 20050615
  5. TRITTICO [Suspect]
     Dosage: DF ONCE PO
     Route: 048
     Dates: start: 20050615, end: 20050615
  6. TRUXAL [Suspect]
     Dosage: DF ONCE PO
     Route: 048
     Dates: start: 20050615, end: 20050615

REACTIONS (9)
  - AGGRESSION [None]
  - AGITATION [None]
  - DEPRESSED LEVEL OF CONSCIOUSNESS [None]
  - GLASGOW COMA SCALE ABNORMAL [None]
  - HYPERCAPNIA [None]
  - MIOSIS [None]
  - OVERDOSE [None]
  - SOPOR [None]
  - SUICIDE ATTEMPT [None]
